FAERS Safety Report 5139934-1 (Version None)
Quarter: 2006Q4

REPORT INFORMATION
  Report Type: 
  Country: None (occurrence: None)
  Receive Date: 20061031
  Receipt Date: 20060306
  Transmission Date: 20070319
  Serious: Yes (Hospitalization)
  Sender: FDA-Public Use
  Company Number: US-ELI_LILLY_AND_COMPANY-US200605005846

PATIENT
  Age: 51 Year
  Sex: Female
  Weight: 122 kg

DRUGS (3)
  1. ZYPREXA [Suspect]
     Indication: DEPRESSION
     Dosage: 5 MG, UNK
     Dates: start: 19960101, end: 19990101
  2. ZYPREXA [Suspect]
     Dosage: 10 MG, UNK
     Dates: start: 19960101, end: 19990101
  3. VERAPAMIL [Concomitant]
     Dates: start: 19990101

REACTIONS (4)
  - BLOOD PRESSURE INCREASED [None]
  - DIABETES MELLITUS [None]
  - HYPERTENSION [None]
  - RENAL DISORDER [None]
